FAERS Safety Report 13713594 (Version 1)
Quarter: 2017Q3

REPORT INFORMATION
  Report Type: Spontaneous
  Country: MY (occurrence: MY)
  Receive Date: 20170704
  Receipt Date: 20170704
  Transmission Date: 20171127
  Serious: Yes (Death)
  Sender: FDA-Public Use
  Company Number: MY-TORRENT-00000064

PATIENT
  Age: 65 Year
  Sex: Female

DRUGS (3)
  1. VALPROATE SODIUM. [Concomitant]
     Active Substance: VALPROATE SODIUM
  2. LAMOTRIGINE. [Suspect]
     Active Substance: LAMOTRIGINE
  3. PERPHENAZINE. [Concomitant]
     Active Substance: PERPHENAZINE

REACTIONS (2)
  - Product substitution issue [Fatal]
  - Toxic epidermal necrolysis [Fatal]

NARRATIVE: CASE EVENT DATE: 20140323
